FAERS Safety Report 8094427-7 (Version None)
Quarter: 2012Q1

REPORT INFORMATION
  Report Type: 
  Country: None (occurrence: None)
  Receive Date: 20120130
  Receipt Date: 20111006
  Transmission Date: 20120608
  Serious: Yes (Hospitalization)
  Sender: FDA-Public Use
  Company Number: CA-JNJFOC-20120105863

PATIENT
  Sex: Female
  Weight: 80 kg

DRUGS (13)
  1. REMICADE [Suspect]
     Dosage: 49TH INFUSION
     Route: 042
     Dates: start: 20110811
  2. DOMPERIDONE [Concomitant]
     Route: 065
  3. FOLIC ACID [Concomitant]
     Route: 065
  4. ZOPICLONE [Concomitant]
     Route: 065
  5. HUMULIN R [Concomitant]
     Indication: DIABETES MELLITUS
     Route: 065
  6. REMICADE [Suspect]
     Indication: RHEUMATOID ARTHRITIS
     Route: 042
     Dates: start: 20030417
  7. DILTIAZEM HCL [Concomitant]
     Route: 065
  8. NITROGLYCERIN SPRAY [Concomitant]
     Route: 065
  9. ARICEPT [Concomitant]
     Indication: DEMENTIA
     Route: 065
  10. MIRTAZAPINE [Concomitant]
     Route: 065
  11. LANSOPRAZOLE [Concomitant]
     Route: 065
  12. LASIX [Concomitant]
     Route: 065
  13. REMICADE [Suspect]
     Dosage: 50TH INFUSION
     Route: 042
     Dates: start: 20111006

REACTIONS (3)
  - WOUND DRAINAGE [None]
  - SWELLING [None]
  - SKIN IRRITATION [None]
